FAERS Safety Report 18203183 (Version 10)
Quarter: 2021Q2

REPORT INFORMATION
  Report Type: Report from Study
  Country: US (occurrence: US)
  Receive Date: 20200827
  Receipt Date: 20210419
  Transmission Date: 20210717
  Serious: Yes (Other)
  Sender: FDA-Public Use
  Company Number: NVSC2020US236011

PATIENT
  Sex: Female
  Weight: 118.91 kg

DRUGS (6)
  1. GILENYA [Suspect]
     Active Substance: FINGOLIMOD HYDROCHLORIDE
     Indication: MULTIPLE SCLEROSIS
     Dosage: 0.5 MG, QD
     Route: 048
  2. GILENYA [Suspect]
     Active Substance: FINGOLIMOD HYDROCHLORIDE
     Dosage: 0.5 MG, QD
     Route: 048
  3. GILENYA [Suspect]
     Active Substance: FINGOLIMOD HYDROCHLORIDE
     Dosage: 0.5 MG
     Route: 048
     Dates: start: 202008
  4. GILENYA [Suspect]
     Active Substance: FINGOLIMOD HYDROCHLORIDE
     Dosage: 0.5 MG
     Route: 048
  5. GILENYA [Suspect]
     Active Substance: FINGOLIMOD HYDROCHLORIDE
     Dosage: 0.5 MG, QOD
     Route: 048
  6. GILENYA [Suspect]
     Active Substance: FINGOLIMOD HYDROCHLORIDE
     Dosage: 0.5 MG, QOD
     Route: 048
     Dates: start: 20200824, end: 20200901

REACTIONS (14)
  - Intervertebral disc protrusion [Unknown]
  - Off label use [Unknown]
  - Multiple sclerosis relapse [Unknown]
  - Stomatitis [Unknown]
  - Blood pressure increased [Unknown]
  - Selective eating disorder [Recovered/Resolved]
  - Drug tolerance [Unknown]
  - Fatigue [Unknown]
  - Nausea [Unknown]
  - Cardiac disorder [Unknown]
  - Pain [Unknown]
  - Vision blurred [Unknown]
  - Blood iron decreased [Unknown]
  - Strabismus [Unknown]
